FAERS Safety Report 19928134 (Version 1)
Quarter: 2021Q4

REPORT INFORMATION
  Report Type: Spontaneous
  Country: US (occurrence: US)
  Receive Date: 20211006
  Receipt Date: 20211006
  Transmission Date: 20220304
  Serious: Yes (unspecified)
  Sender: FDA-Public Use
  Company Number: None

PATIENT
  Age: 41 Year
  Sex: Female
  Weight: 64.5 kg

DRUGS (1)
  1. OCREVUS [Suspect]
     Active Substance: OCRELIZUMAB
     Indication: Multiple sclerosis
     Dosage: OTHER FREQUENCY:EVERY 6 MONTHS;
     Route: 041
     Dates: start: 20200220

REACTIONS (2)
  - Pruritus [None]
  - Incorrect drug administration rate [None]

NARRATIVE: CASE EVENT DATE: 20211005
